FAERS Safety Report 12892345 (Version 2)
Quarter: 2016Q4

REPORT INFORMATION
  Report Type: Report from Study
  Country: JP (occurrence: JP)
  Receive Date: 20161028
  Receipt Date: 20161104
  Transmission Date: 20170207
  Serious: Yes (Other)
  Sender: FDA-Public Use
  Company Number: JP-AMGEN-JPNNI2016150562

PATIENT
  Age: 66 Year
  Sex: Female
  Weight: 76 kg

DRUGS (47)
  1. 5-FU                               /00098801/ [Suspect]
     Active Substance: FLUOROURACIL
     Indication: BREAST CANCER STAGE II
     Dosage: 844 MG, UNK
     Route: 041
     Dates: start: 20160302, end: 20160302
  2. EPIRUBICIN HYDROCHLORIDE. [Suspect]
     Active Substance: EPIRUBICIN HYDROCHLORIDE
     Indication: BREAST CANCER STAGE II
     Dosage: 168 MG, UNK
     Route: 041
     Dates: start: 20160302, end: 20160302
  3. ALOXI [Suspect]
     Active Substance: PALONOSETRON HYDROCHLORIDE
     Dosage: 0.75 MG, UNK
     Route: 042
     Dates: start: 20160413, end: 20160413
  4. PROEMEND [Suspect]
     Active Substance: FOSAPREPITANT
     Indication: BREAST CANCER STAGE II
     Dosage: 150 MG, UNK
     Route: 041
     Dates: start: 20160302, end: 20160302
  5. DEXART [Suspect]
     Active Substance: DEXAMETHASONE SODIUM PHOSPHATE
     Dosage: 9.9 MG, UNK
     Route: 065
     Dates: start: 20160413, end: 20160413
  6. PEGFILGRASTIM [Suspect]
     Active Substance: PEGFILGRASTIM
     Dosage: 3.6 MG, UNK
     Route: 058
     Dates: start: 20160415, end: 20160415
  7. 5-FU                               /00098801/ [Suspect]
     Active Substance: FLUOROURACIL
     Dosage: 863 MG, UNK
     Route: 041
     Dates: start: 20160413, end: 20160413
  8. 5-FU                               /00098801/ [Suspect]
     Active Substance: FLUOROURACIL
     Dosage: 860 MG, UNK
     Route: 041
     Dates: start: 20160506, end: 20160506
  9. ENDOXAN                            /00021101/ [Suspect]
     Active Substance: CYCLOPHOSPHAMIDE
     Dosage: 863 MG, UNK
     Route: 041
     Dates: start: 20160413, end: 20160413
  10. ALOXI [Suspect]
     Active Substance: PALONOSETRON HYDROCHLORIDE
     Indication: BREAST CANCER STAGE II
     Dosage: 0.75 MG, UNK
     Route: 042
     Dates: start: 20160302, end: 20160302
  11. PEGFILGRASTIM [Suspect]
     Active Substance: PEGFILGRASTIM
     Dosage: 3.6 MG, UNK
     Route: 058
     Dates: start: 20160509, end: 20160509
  12. ENDOXAN                            /00021101/ [Suspect]
     Active Substance: CYCLOPHOSPHAMIDE
     Dosage: 860 MG, UNK
     Route: 041
     Dates: start: 20160506, end: 20160506
  13. PROEMEND [Suspect]
     Active Substance: FOSAPREPITANT
     Dosage: 150 MG, UNK
     Route: 041
     Dates: start: 20160506, end: 20160506
  14. DOCETAXEL. [Suspect]
     Active Substance: DOCETAXEL
     Dosage: 120 MG, UNK
     Route: 041
     Dates: start: 20160629, end: 20160629
  15. DECADRON [Concomitant]
     Active Substance: DEXAMETHASONE
     Dosage: UNK
     Route: 048
  16. DEXART [Suspect]
     Active Substance: DEXAMETHASONE SODIUM PHOSPHATE
     Dosage: 6.6 MG, UNK
     Route: 065
     Dates: start: 20160603, end: 20160603
  17. DOCETAXEL. [Suspect]
     Active Substance: DOCETAXEL
     Indication: BREAST CANCER STAGE II
     Dosage: 120 MG, UNK
     Route: 041
     Dates: start: 20160603, end: 20160603
  18. MICARDIS [Concomitant]
     Active Substance: TELMISARTAN
     Indication: HYPERTENSION
     Dosage: UNK
     Route: 048
  19. LEUCON                             /00300201/ [Concomitant]
     Active Substance: ADENINE
     Dosage: UNK
     Route: 048
  20. EMEND [Concomitant]
     Active Substance: APREPITANT
     Dosage: UNK
     Route: 048
  21. EPIRUBICIN HYDROCHLORIDE. [Suspect]
     Active Substance: EPIRUBICIN HYDROCHLORIDE
     Dosage: 171 MG, UNK
     Route: 041
     Dates: start: 20160323, end: 20160323
  22. EPIRUBICIN HYDROCHLORIDE. [Suspect]
     Active Substance: EPIRUBICIN HYDROCHLORIDE
     Dosage: 172 MG, UNK
     Route: 041
     Dates: start: 20160413, end: 20160413
  23. EPIRUBICIN HYDROCHLORIDE. [Suspect]
     Active Substance: EPIRUBICIN HYDROCHLORIDE
     Dosage: 172 MG, UNK
     Route: 041
     Dates: start: 20160506, end: 20160506
  24. ALOXI [Suspect]
     Active Substance: PALONOSETRON HYDROCHLORIDE
     Dosage: 0.75 MG, UNK
     Route: 042
     Dates: start: 20160323, end: 20160323
  25. FILGRASTIM [Concomitant]
     Active Substance: FILGRASTIM
     Indication: NEUTROPHIL COUNT DECREASED
     Dosage: 75 MUG, UNK
     Route: 065
     Dates: start: 20160601, end: 20160601
  26. SENNOSIDE                          /00571901/ [Concomitant]
     Active Substance: SENNOSIDES A AND B
     Dosage: UNK
     Route: 048
  27. PEGFILGRASTIM [Suspect]
     Active Substance: PEGFILGRASTIM
     Dosage: 3.6 MG, UNK
     Route: 058
     Dates: start: 20160325, end: 20160325
  28. PEGFILGRASTIM [Suspect]
     Active Substance: PEGFILGRASTIM
     Dosage: 3.6 MG, UNK
     Route: 058
     Dates: start: 20160605, end: 20160605
  29. ENDOXAN                            /00021101/ [Suspect]
     Active Substance: CYCLOPHOSPHAMIDE
     Dosage: 859 MG, UNK
     Route: 041
     Dates: start: 20160323, end: 20160323
  30. ALOXI [Suspect]
     Active Substance: PALONOSETRON HYDROCHLORIDE
     Dosage: 0.75 MG, UNK
     Route: 042
     Dates: start: 20160506, end: 20160506
  31. PROEMEND [Suspect]
     Active Substance: FOSAPREPITANT
     Dosage: 150 MG, UNK
     Route: 041
     Dates: start: 20160413, end: 20160413
  32. DEXART [Suspect]
     Active Substance: DEXAMETHASONE SODIUM PHOSPHATE
     Dosage: 9.9 MG, UNK
     Route: 065
     Dates: start: 20160323, end: 20160323
  33. DEXART [Suspect]
     Active Substance: DEXAMETHASONE SODIUM PHOSPHATE
     Dosage: 6.6 MG, UNK
     Route: 065
     Dates: start: 20160629, end: 20160629
  34. NASEA [Concomitant]
     Active Substance: RAMOSETRON HYDROCHLORIDE
     Dosage: UNK
     Route: 048
  35. PROTECADIN [Concomitant]
     Active Substance: LAFUTIDINE
     Dosage: UNK
     Route: 048
  36. AZ                                 /00317303/ [Concomitant]
     Dosage: UNK
     Route: 049
  37. PEGFILGRASTIM [Suspect]
     Active Substance: PEGFILGRASTIM
     Indication: COLONY STIMULATING FACTOR PROPHYLAXIS
     Dosage: 3.6 MG, UNK
     Route: 058
     Dates: start: 20160304, end: 20160304
  38. PEGFILGRASTIM [Suspect]
     Active Substance: PEGFILGRASTIM
     Dosage: 3.6 MG, UNK
     Route: 058
     Dates: start: 20160701, end: 20160701
  39. 5-FU                               /00098801/ [Suspect]
     Active Substance: FLUOROURACIL
     Dosage: 859 MG, UNK
     Route: 041
     Dates: start: 20160323, end: 20160323
  40. PROEMEND [Suspect]
     Active Substance: FOSAPREPITANT
     Dosage: 150 MG, UNK
     Route: 041
     Dates: start: 20160323, end: 20160323
  41. DEXART [Suspect]
     Active Substance: DEXAMETHASONE SODIUM PHOSPHATE
     Indication: BREAST CANCER STAGE II
     Dosage: 9.9 MG, UNK
     Route: 065
     Dates: start: 20160302, end: 20160302
  42. DEXART [Suspect]
     Active Substance: DEXAMETHASONE SODIUM PHOSPHATE
     Dosage: 9.9 MG, UNK
     Route: 065
     Dates: start: 20160506, end: 20160506
  43. PRIMPERAN [Concomitant]
     Active Substance: METOCLOPRAMIDE HYDROCHLORIDE
     Dosage: UNK
     Route: 048
  44. MAGMITT [Concomitant]
     Active Substance: MAGNESIUM OXIDE
     Dosage: UNK
     Route: 048
  45. ENDOXAN                            /00021101/ [Suspect]
     Active Substance: CYCLOPHOSPHAMIDE
     Indication: BREAST CANCER STAGE II
     Dosage: 844 MG, UNK
     Route: 041
     Dates: start: 20160302, end: 20160302
  46. ADALAT [Concomitant]
     Active Substance: NIFEDIPINE
     Indication: HYPERTENSION
     Dosage: UNK
     Route: 048
  47. REBAMIPIDE [Concomitant]
     Active Substance: REBAMIPIDE
     Dosage: UNK
     Route: 048

REACTIONS (3)
  - Neutrophil count decreased [Recovered/Resolved]
  - Neutrophil count decreased [Recovered/Resolved]
  - Colony stimulating factor therapy [Unknown]

NARRATIVE: CASE EVENT DATE: 20160309
